FAERS Safety Report 17027525 (Version 1)
Quarter: 2019Q4

REPORT INFORMATION
  Report Type: Spontaneous
  Country: US (occurrence: US)
  Receive Date: 20191009
  Receipt Date: 20191009
  Transmission Date: 20200122
  Serious: Yes (Other)
  Sender: FDA-Public Use
  Company Number: None

PATIENT
  Age: 63 Year
  Sex: Female
  Weight: 68.04 kg

DRUGS (13)
  1. FEXOFENADINE [Concomitant]
     Active Substance: FEXOFENADINE HYDROCHLORIDE
  2. CALCIUM PLUS VIT D [Concomitant]
  3. VITAMIN B12 [Concomitant]
     Active Substance: CYANOCOBALAMIN
  4. CALCITONIN SALMON (SYNTHETIC ORIGIN) NASAL SPRAY [Suspect]
     Active Substance: CALCITONIN SALMON
     Indication: OSTEOPOROSIS
     Dosage: ?          QUANTITY:1 DF DOSAGE FORM;?
     Route: 045
     Dates: start: 20190409, end: 20190411
  5. MAGNESIUM [Concomitant]
     Active Substance: MAGNESIUM
  6. VITAMIN D3 [Concomitant]
     Active Substance: CHOLECALCIFEROL
  7. ASPIRIN. [Concomitant]
     Active Substance: ASPIRIN
  8. ROSUVASTATIN CAL [Concomitant]
  9. COMPLETE MULT-VITAMIN ADULTS 55+ [Concomitant]
  10. CINNAMON. [Concomitant]
     Active Substance: CINNAMON
  11. COQ10 [Concomitant]
     Active Substance: UBIDECARENONE
  12. HI ACTIVES TART CHERRY [Concomitant]
  13. CRANBERRY WITH VIT C [Concomitant]

REACTIONS (16)
  - Myalgia [None]
  - Dysphagia [None]
  - Tinnitus [None]
  - Blister [None]
  - Chest discomfort [None]
  - Cough [None]
  - Throat tightness [None]
  - Oropharyngeal pain [None]
  - Dysphonia [None]
  - Muscle spasms [None]
  - Back pain [None]
  - Palpitations [None]
  - Pyrexia [None]
  - Epistaxis [None]
  - Headache [None]
  - Pain [None]

NARRATIVE: CASE EVENT DATE: 20190410
